FAERS Safety Report 6098775-1 (Version None)
Quarter: 2009Q1

REPORT INFORMATION
  Report Type: 
  Country: None (occurrence: None)
  Receive Date: 20090302
  Receipt Date: 20090218
  Transmission Date: 20090719
  Serious: Yes (Hospitalization)
  Sender: FDA-Public Use
  Company Number: GB-PFIZER INC-2009169986

PATIENT

DRUGS (1)
  1. GENOTROPIN [Suspect]
     Dosage: 0.6 MG/ 0.8 MG, ALTERNATE DAY
     Route: 030
     Dates: start: 20081001, end: 20090211

REACTIONS (2)
  - INTRACRANIAL PRESSURE INCREASED [None]
  - MYASTHENIA GRAVIS [None]
